FAERS Safety Report 25488351 (Version 1)
Quarter: 2025Q2

REPORT INFORMATION
  Report Type: Spontaneous
  Country: US (occurrence: US)
  Receive Date: 20250627
  Receipt Date: 20250627
  Transmission Date: 20250716
  Serious: Yes (Hospitalization)
  Sender: ELI LILLY AND COMPANY
  Company Number: US-ELI_LILLY_AND_COMPANY-US202506017084

PATIENT
  Age: 57 Year
  Sex: Male
  Weight: 63.5 kg

DRUGS (4)
  1. HUMALOG [Suspect]
     Active Substance: INSULIN LISPRO
     Indication: Product used for unknown indication
     Route: 065
  2. LISINOPRIL [Concomitant]
     Active Substance: LISINOPRIL
     Indication: Diabetes mellitus
  3. HYDROCHLOROTHIAZIDE [Concomitant]
     Active Substance: HYDROCHLOROTHIAZIDE
     Indication: Diabetes mellitus
  4. EZETIMIBE [Concomitant]
     Active Substance: EZETIMIBE
     Indication: Diabetes mellitus

REACTIONS (8)
  - Blood glucose increased [Unknown]
  - Balance disorder [Unknown]
  - Fall [Unknown]
  - Thinking abnormal [Unknown]
  - Paraesthesia [Unknown]
  - Burning sensation [Unknown]
  - Fatigue [Unknown]
  - Tremor [Unknown]
